FAERS Safety Report 12211520 (Version 1)
Quarter: 2016Q1

REPORT INFORMATION
  Report Type: Spontaneous
  Country: JP (occurrence: JP)
  Receive Date: 20160325
  Receipt Date: 20160325
  Transmission Date: 20160526
  Serious: Yes (Death)
  Sender: FDA-Public Use
  Company Number: JP-TEVA-645593ISR

PATIENT
  Age: 86 Year
  Sex: Male
  Weight: 55 kg

DRUGS (4)
  1. E-FEN BUCCAL [Suspect]
     Active Substance: FENTANYL CITRATE
     Dosage: 50 MILLIGRAM DAILY;
     Route: 002
     Dates: start: 20141109, end: 20141120
  2. E-FEN BUCCAL [Suspect]
     Active Substance: FENTANYL CITRATE
     Indication: BREAKTHROUGH PAIN
     Dosage: 50 MILLIGRAM DAILY;
     Route: 002
     Dates: start: 20141031, end: 20141108
  3. FENTOS [Concomitant]
     Active Substance: FENTANYL
     Indication: CANCER PAIN
     Dosage: 1 MILLIGRAM DAILY;
     Route: 062
     Dates: start: 20141031, end: 20141203
  4. TELEMINSOFT [Concomitant]
     Active Substance: BISACODYL
     Dosage: 10 MILLIGRAM DAILY;
     Route: 054
     Dates: start: 20141031, end: 20141128

REACTIONS (1)
  - Nasal sinus cancer [Fatal]

NARRATIVE: CASE EVENT DATE: 20141203
